FAERS Safety Report 4735143-6 (Version None)
Quarter: 2005Q3

REPORT INFORMATION
  Report Type: 
  Country: None (occurrence: None)
  Receive Date: 20050803
  Receipt Date: 20050720
  Transmission Date: 20060218
  Serious: Yes (Hospitalization, Other)
  Sender: FDA-Public Use
  Company Number: USA0507103342

PATIENT
  Age: 75 Year
  Sex: Female

DRUGS (1)
  1. HUMALOG [Suspect]

REACTIONS (4)
  - DEVICE MALFUNCTION [None]
  - MEDICATION ERROR [None]
  - OVERDOSE [None]
  - PHARMACEUTICAL PRODUCT COMPLAINT [None]
